FAERS Safety Report 20792519 (Version 15)
Quarter: 2022Q3

REPORT INFORMATION
  Report Type: Report from Study
  Country: ES (occurrence: ES)
  Receive Date: 20220506
  Receipt Date: 20220913
  Transmission Date: 20221027
  Serious: Yes (Hospitalization, Other)
  Sender: FDA-Public Use
  Company Number: ES-ABBVIE-22K-144-4381210-00

PATIENT
  Sex: Male

DRUGS (31)
  1. CARBIDOPA\LEVODOPA [Suspect]
     Active Substance: CARBIDOPA\LEVODOPA
     Indication: Parkinson^s disease
     Dosage: MORNING DOSE 8 PLUS 3, CONTINUOUS DOSE 1.8, EXTRA DOSE 1.5
     Route: 050
     Dates: end: 20220505
  2. CARBIDOPA\LEVODOPA [Suspect]
     Active Substance: CARBIDOPA\LEVODOPA
     Route: 050
     Dates: start: 20220505, end: 202205
  3. CARBIDOPA\LEVODOPA [Suspect]
     Active Substance: CARBIDOPA\LEVODOPA
     Dosage: MORNING DOSE: 8; CONTINUOUS DOSE: 1.6; EXTRA DOSE: 2
     Route: 050
     Dates: start: 202205, end: 202205
  4. CARBIDOPA\LEVODOPA [Suspect]
     Active Substance: CARBIDOPA\LEVODOPA
     Dosage: MORNING DOSE: 7; CONTINUOUS DOSE: 1; EXTRA DOSE: 2
     Route: 050
     Dates: start: 202205, end: 20220705
  5. CARBIDOPA\LEVODOPA [Suspect]
     Active Substance: CARBIDOPA\LEVODOPA
     Dosage: DOSE WAS ADJUSTED UPWARDS
     Route: 050
     Dates: start: 20220705, end: 202207
  6. CARBIDOPA\LEVODOPA [Suspect]
     Active Substance: CARBIDOPA\LEVODOPA
     Dosage: MORNING DOSE IS FURTHER INCREASED TO 11ML, CONTINUOUS DOSE TO 2ML AND EXTRA DOSE TO 4ML
     Route: 050
     Dates: start: 202207, end: 20220718
  7. CARBIDOPA\LEVODOPA [Suspect]
     Active Substance: CARBIDOPA\LEVODOPA
     Dosage: MORNING DOSE 11ML, CONTINUOUS DOSE 1.8ML, EXTRA DOSE 4ML
     Route: 050
     Dates: start: 20220718, end: 20220905
  8. CARBIDOPA\LEVODOPA [Suspect]
     Active Substance: CARBIDOPA\LEVODOPA
     Dosage: ADJUSTED THE DOSE UPWARDS
     Route: 050
     Dates: start: 20220905
  9. CARBIDOPA\LEVODOPA [Suspect]
     Active Substance: CARBIDOPA\LEVODOPA
     Indication: Parkinson^s disease
     Dosage: 2 2 2 2
     Route: 048
     Dates: end: 20220501
  10. CARBIDOPA\LEVODOPA [Suspect]
     Active Substance: CARBIDOPA\LEVODOPA
     Dosage: 2 2 2 2
     Route: 048
     Dates: start: 20220503
  11. AMANTADINE [Concomitant]
     Active Substance: AMANTADINE
     Indication: Parkinson^s disease
     Route: 048
     Dates: end: 20220502
  12. XADAGO [Concomitant]
     Active Substance: SAFINAMIDE MESYLATE
     Indication: Parkinson^s disease
     Route: 048
     Dates: end: 20220501
  13. ONGENTYS [Concomitant]
     Active Substance: OPICAPONE
     Indication: Parkinson^s disease
     Route: 048
     Dates: end: 20220429
  14. BENSERAZIDE HYDROCHLORIDE\LEVODOPA [Concomitant]
     Active Substance: BENSERAZIDE HYDROCHLORIDE\LEVODOPA
     Indication: Parkinson^s disease
     Route: 048
     Dates: end: 20220501
  15. RIVOTRIL [Concomitant]
     Active Substance: CLONAZEPAM
     Indication: Product used for unknown indication
     Route: 048
  16. MESTINON [Concomitant]
     Active Substance: PYRIDOSTIGMINE BROMIDE
     Indication: Constipation
     Dosage: 1-1-1
     Route: 048
     Dates: start: 20220503, end: 20220506
  17. MESTINON [Concomitant]
     Active Substance: PYRIDOSTIGMINE BROMIDE
     Dosage: 1-1-1
     Route: 048
     Dates: start: 20220509, end: 20220513
  18. ASPIRIN [Concomitant]
     Active Substance: ASPIRIN
     Indication: Product used for unknown indication
     Route: 048
  19. AMLODIPINE [Concomitant]
     Active Substance: AMLODIPINE BESYLATE
     Indication: Product used for unknown indication
     Route: 048
  20. ATENOLOL [Concomitant]
     Active Substance: ATENOLOL
     Indication: Product used for unknown indication
     Route: 048
  21. LOSARTAN [Concomitant]
     Active Substance: LOSARTAN
     Indication: Product used for unknown indication
     Route: 048
  22. NITROFIX [Concomitant]
     Indication: Product used for unknown indication
     Dosage: DERMAL
  23. SILODOSIN [Concomitant]
     Active Substance: SILODOSIN
     Indication: Product used for unknown indication
     Route: 048
     Dates: end: 202206
  24. PRAMIPEXOLE [Concomitant]
     Active Substance: PRAMIPEXOLE
     Indication: Product used for unknown indication
     Dates: end: 20220502
  25. CLOMETHIAZOLE [Concomitant]
     Active Substance: CLOMETHIAZOLE
     Indication: Product used for unknown indication
     Dosage: UP TO 3
     Route: 048
     Dates: start: 20220509, end: 202206
  26. MARIXINO [Concomitant]
     Indication: Product used for unknown indication
     Route: 048
     Dates: start: 20220509, end: 20220513
  27. NITROFIX [Concomitant]
     Indication: Product used for unknown indication
     Dosage: DERMAL  CHRONIC, UNKNOWN
     Route: 061
  28. LIXBEN [Concomitant]
     Indication: Product used for unknown indication
     Route: 048
     Dates: start: 20220509, end: 20220513
  29. CLOZAPINE [Concomitant]
     Active Substance: CLOZAPINE
     Indication: Product used for unknown indication
     Route: 048
     Dates: start: 20220513
  30. TAMSULOSIN [Concomitant]
     Active Substance: TAMSULOSIN
     Indication: Product used for unknown indication
     Dates: start: 20220712, end: 20220718
  31. DUTASTERIDE\TAMSULOSIN [Concomitant]
     Active Substance: DUTASTERIDE\TAMSULOSIN
     Indication: Product used for unknown indication
     Route: 048
     Dates: start: 20220718

REACTIONS (31)
  - Unresponsive to stimuli [Recovered/Resolved]
  - Pain in extremity [Not Recovered/Not Resolved]
  - Intentional overdose [Unknown]
  - Consciousness fluctuating [Recovered/Resolved]
  - Aggression [Recovered/Resolved]
  - Delirium [Recovering/Resolving]
  - Confusional state [Recovered/Resolved]
  - Insomnia [Not Recovered/Not Resolved]
  - Agitation [Recovered/Resolved]
  - Hypotension [Recovered/Resolved]
  - Musculoskeletal stiffness [Not Recovered/Not Resolved]
  - Urinary tract infection [Unknown]
  - Intentional medical device removal by patient [Unknown]
  - Unevaluable event [Recovering/Resolving]
  - Drug ineffective [Unknown]
  - Unintentional medical device removal [Recovered/Resolved]
  - Wrong technique in product usage process [Unknown]
  - Depressed mood [Unknown]
  - Motor dysfunction [Unknown]
  - Device dislocation [Unknown]
  - Pyrexia [Recovered/Resolved]
  - Disorientation [Recovering/Resolving]
  - Constipation [Unknown]
  - Therapeutic product effect incomplete [Unknown]
  - Hallucination [Recovered/Resolved]
  - Intentional product misuse [Unknown]
  - Fall [Unknown]
  - Joint swelling [Unknown]
  - Arthralgia [Unknown]
  - Parkinsonian gait [Unknown]
  - On and off phenomenon [Unknown]

NARRATIVE: CASE EVENT DATE: 20220101
